FAERS Safety Report 7045709-9 (Version None)
Quarter: 2010Q4

REPORT INFORMATION
  Report Type: 
  Country: None (occurrence: None)
  Receive Date: 20101014
  Receipt Date: 20101011
  Transmission Date: 20110411
  Serious: Yes (Hospitalization, Other)
  Sender: FDA-Public Use
  Company Number: FR-BRISTOL-MYERS SQUIBB COMPANY-15331838

PATIENT
  Age: 82 Year
  Sex: Male

DRUGS (9)
  1. BUSPAR [Suspect]
     Dosage: 1 DF - 1 TABS
     Route: 048
     Dates: start: 20100823, end: 20100907
  2. TRAMADOL HCL [Suspect]
     Dosage: CONTRAMAL S.R 150 MG(TRAMADOL) 1 TABLET EXTENDED RELEASE;
     Route: 048
     Dates: end: 20100907
  3. CORDARONE [Concomitant]
     Dosage: CORDARONE 200 MG ;1 DF - 5 SCORED TABLETS;
     Route: 048
  4. NASONEX [Concomitant]
     Dosage: 2 ADMINISTRATIONS BY INHALATION
     Route: 055
  5. NULYTELY [Concomitant]
     Dosage: 1 DF - 1 SACHET OF POWDER FOR ORAL SOLUTION
     Route: 048
  6. ALFUZOSIN HCL [Concomitant]
     Dosage: XATRAL SR 10 MG;1 DF - 1 TABLET EXTENDED RELEASE
     Route: 048
  7. PREVISCAN [Concomitant]
     Dosage: PREVISCAN 20 MG (FLUINDIONE) ALTERNATELY 1/4 AND 1/2 SCORED TABLET;
     Route: 048
  8. MODOPAR [Concomitant]
     Dosage: MODOPAR 125 (100 MG/20 MG);1 DF - 1 CAPS
     Route: 048
  9. TAHOR [Concomitant]
     Dosage: TAHOR 10 MG;1 DF - 1 FILM-COATED TABLET;
     Route: 048

REACTIONS (4)
  - ABNORMAL BEHAVIOUR [None]
  - CONFUSIONAL STATE [None]
  - EXTRAPYRAMIDAL DISORDER [None]
  - FALL [None]
